FAERS Safety Report 4598994-7 (Version None)
Quarter: 2005Q1

REPORT INFORMATION
  Report Type: 
  Country: None (occurrence: None)
  Receive Date: 20050302
  Receipt Date: 20050218
  Transmission Date: 20050727
  Serious: Yes (Death, Hospitalization)
  Sender: FDA-Public Use
  Company Number: 2005-00170

PATIENT
  Age: 66 Year
  Sex: Male

DRUGS (8)
  1. VELCADE [Suspect]
     Indication: MULTIPLE MYELOMA
     Dosage: 3.50 MG
     Dates: start: 20040901
  2. STILNOCT              (ZOLPIDEM TARTRATE) [Concomitant]
  3. LANSOPRAZOLE [Concomitant]
  4. PRIMPERAN TAB [Concomitant]
  5. AREDIA [Concomitant]
  6. PROPAVAN (PROPIOMAZINE MALEATE) [Concomitant]
  7. DELTISON (PREDNISONE, CALCIUM PHOSPHATE, MAGNESIUM TRISILICATE) [Concomitant]
  8. BETAPRED [Concomitant]

REACTIONS (2)
  - LEUKAEMIA PLASMACYTIC [None]
  - LEUKAEMIC INFILTRATION HEPATIC [None]
